FAERS Safety Report 25435250 (Version 3)
Quarter: 2025Q3

REPORT INFORMATION
  Report Type: Report from Study
  Country: US (occurrence: US)
  Receive Date: 20250613
  Receipt Date: 20250714
  Transmission Date: 20251021
  Serious: Yes (Other)
  Sender: MALLINCKRODT
  Company Number: US-MALLINCKRODT-MNK202503438

PATIENT
  Age: 65 Year
  Sex: Female

DRUGS (2)
  1. CORTICOTROPIN [Suspect]
     Active Substance: CORTICOTROPIN
     Indication: Rheumatoid arthritis
     Route: 058
     Dates: start: 20250522
  2. ALCOHOL [Concomitant]
     Active Substance: ALCOHOL

REACTIONS (12)
  - Crohn^s disease [Recovered/Resolved]
  - Anaemia [Unknown]
  - Cough [Unknown]
  - Respiratory tract congestion [Unknown]
  - Illness [Unknown]
  - Arthritis [Unknown]
  - Diarrhoea [Unknown]
  - Pyrexia [Unknown]
  - Nasopharyngitis [Unknown]
  - Injection site pain [Unknown]
  - Injection site haemorrhage [Unknown]
  - Nasopharyngitis [None]

NARRATIVE: CASE EVENT DATE: 20250101
